FAERS Safety Report 19997932 (Version 2)
Quarter: 2021Q4

REPORT INFORMATION
  Report Type: Report from Study
  Country: US (occurrence: US)
  Receive Date: 20211026
  Receipt Date: 20211029
  Transmission Date: 20220303
  Serious: Yes (Hospitalization)
  Sender: FDA-Public Use
  Company Number: US-EXELIXIS-XL18421045031

PATIENT
  Age: 65 Year
  Sex: Male
  Weight: 73.8 kg

DRUGS (6)
  1. CABOZANTINIB [Suspect]
     Active Substance: CABOZANTINIB
     Indication: Prostate cancer
     Dosage: UNK
     Dates: end: 20210904
  2. CABOZANTINIB [Suspect]
     Active Substance: CABOZANTINIB
     Dosage: UNK
     Dates: start: 20211005
  3. NIVOLUMAB [Suspect]
     Active Substance: NIVOLUMAB
     Indication: Prostate cancer
     Dosage: UNK
     Dates: end: 20210904
  4. ABIRATERONE. [Suspect]
     Active Substance: ABIRATERONE ACETATE
     Indication: Prostate cancer
     Dosage: UNK
     Dates: end: 20210904
  5. ABIRATERONE. [Suspect]
     Active Substance: ABIRATERONE ACETATE
     Dosage: UNK
     Dates: start: 20210907
  6. ABIRATERONE. [Suspect]
     Active Substance: ABIRATERONE ACETATE
     Dosage: UNK
     Dates: start: 20210914

REACTIONS (2)
  - Joint swelling [Unknown]
  - Rash maculo-papular [Recovering/Resolving]

NARRATIVE: CASE EVENT DATE: 20211001
